FAERS Safety Report 24372634 (Version 2)
Quarter: 2025Q1

REPORT INFORMATION
  Report Type: Spontaneous
  Country: US (occurrence: US)
  Receive Date: 20240927
  Receipt Date: 20250206
  Transmission Date: 20250408
  Serious: No
  Sender: LEO PHARM
  Company Number: US-LEO Pharma-373803

PATIENT
  Age: 63 Year
  Sex: Female

DRUGS (1)
  1. ADBRY [Suspect]
     Active Substance: TRALOKINUMAB-LDRM
     Indication: Dermatitis atopic
     Route: 058

REACTIONS (5)
  - Pruritus [Unknown]
  - Injection site inflammation [Unknown]
  - Dermatitis atopic [Unknown]
  - Drug ineffective [Unknown]
  - Skin warm [Unknown]
